FAERS Safety Report 7006637-8 (Version None)
Quarter: 2010Q3

REPORT INFORMATION
  Report Type: 
  Country: None (occurrence: None)
  Receive Date: 20100921
  Receipt Date: 20100921
  Transmission Date: 20110219
  Serious: Yes (Hospitalization)
  Sender: FDA-Public Use
  Company Number: None

PATIENT
  Sex: Female
  Weight: 78.7 kg

DRUGS (14)
  1. PEMETREXED [Suspect]
     Indication: NON-SMALL CELL LUNG CANCER
     Dosage: 400MG/M2 IV Q2 WEEKS
     Route: 042
     Dates: start: 20100702, end: 20100917
  2. GEMCITABINE [Suspect]
     Indication: NON-SMALL CELL LUNG CANCER
     Dosage: 1200MG/M2 Q2 WEEKS
     Dates: start: 20100702, end: 20100917
  3. AVASTIN [Suspect]
     Indication: NON-SMALL CELL LUNG CANCER
     Dosage: 10MG/KG Q2 WEEKS
     Dates: start: 20100702, end: 20100917
  4. COMBIVENT [Concomitant]
  5. ATENOLOL [Concomitant]
  6. CRESTOR [Concomitant]
  7. ALDACTONE [Concomitant]
  8. PREDNISONE [Concomitant]
  9. VICODIN [Concomitant]
  10. ASPIRIN [Concomitant]
  11. LASIX [Concomitant]
  12. FOLIC ACID [Concomitant]
  13. B122 INJECTION [Concomitant]
  14. IMDUR [Concomitant]

REACTIONS (2)
  - CHRONIC OBSTRUCTIVE PULMONARY DISEASE [None]
  - CONDITION AGGRAVATED [None]
